FAERS Safety Report 17660112 (Version 1)
Quarter: 2020Q2

REPORT INFORMATION
  Report Type: Spontaneous
  Country: IR (occurrence: IR)
  Receive Date: 20200413
  Receipt Date: 20200413
  Transmission Date: 20200713
  Serious: Yes (Other)
  Sender: FDA-Public Use
  Company Number: IR-SA-2020SA094018

PATIENT
  Age: 81 Year
  Sex: Male

DRUGS (5)
  1. METOLAR [Concomitant]
     Dosage: 50 MG
     Dates: start: 2012
  2. AMLOPRES [Concomitant]
     Dosage: 5 MG
     Dates: start: 2012
  3. HYDROCHLOROTHIAZIDE. [Concomitant]
     Active Substance: HYDROCHLOROTHIAZIDE
     Dosage: 5 MG
     Dates: start: 2012
  4. OMNIC [Suspect]
     Active Substance: TAMSULOSIN HYDROCHLORIDE
     Indication: BENIGN PROSTATIC HYPERPLASIA
     Dosage: 0.4 MG, QD
     Route: 048
     Dates: start: 2018, end: 20200328
  5. FINIDE [Concomitant]
     Dosage: 5 MG
     Dates: start: 2018

REACTIONS (2)
  - Ear congestion [Not Recovered/Not Resolved]
  - Ear pruritus [Not Recovered/Not Resolved]

NARRATIVE: CASE EVENT DATE: 20200328
